FAERS Safety Report 20897089 (Version 2)
Quarter: 2022Q2

REPORT INFORMATION
  Report Type: Report from Study
  Country: US (occurrence: US)
  Receive Date: 20220531
  Receipt Date: 20220621
  Transmission Date: 20220721
  Serious: Yes (Hospitalization, Other)
  Sender: FDA-Public Use
  Company Number: US-BRISTOL-MYERS SQUIBB COMPANY-2022-046603

PATIENT
  Age: 70 Year
  Sex: Male
  Weight: 87.5 kg

DRUGS (4)
  1. NIVOLUMAB [Suspect]
     Active Substance: NIVOLUMAB
     Indication: Hodgkin^s disease
     Dosage: ON DAYS 1 AND 15 [{18 YEARS: 3 MG/KG (UP TO 240 MG) IV ON DAYS 1 AND 15]
     Route: 042
     Dates: start: 20220426
  2. VINBLASTINE SULFATE [Suspect]
     Active Substance: VINBLASTINE SULFATE
     Indication: Hodgkin^s disease
     Dosage: ON DAYS 1 AND 15
     Route: 042
     Dates: start: 20220426
  3. DOXORUBICIN HYDROCHLORIDE [Suspect]
     Active Substance: DOXORUBICIN HYDROCHLORIDE
     Indication: Hodgkin^s disease
     Dosage: ON DAYS 1 AND 15
     Route: 042
     Dates: start: 20220426
  4. DACARBAZINE [Suspect]
     Active Substance: DACARBAZINE
     Indication: Hodgkin^s disease
     Dosage: ON DAYS 1 AND 15
     Route: 042
     Dates: start: 20220426

REACTIONS (7)
  - Diarrhoea [Recovered/Resolved]
  - Embolism [Not Recovered/Not Resolved]
  - COVID-19 [Unknown]
  - Febrile neutropenia [Unknown]
  - Hypothyroidism [Unknown]
  - Platelet count decreased [Unknown]
  - Upper gastrointestinal haemorrhage [Unknown]

NARRATIVE: CASE EVENT DATE: 20220505
